FAERS Safety Report 4847472-6 (Version None)
Quarter: 2005Q4

REPORT INFORMATION
  Report Type: 
  Country: None (occurrence: None)
  Receive Date: 20051205
  Receipt Date: 20051121
  Transmission Date: 20060501
  Serious: No
  Sender: FDA-Public Use
  Company Number: 2005-134969-NL

PATIENT
  Sex: Female

DRUGS (4)
  1. PREGNYL [Suspect]
     Dosage: 10000 IU
  2. PROGESTERONE [Suspect]
     Indication: ASSISTED FERTILISATION
     Route: 067
  3. GNRHANALOG [Suspect]
     Dosage: DF
  4. UROFOLLITROPIN [Suspect]
     Dosage: DF

REACTIONS (1)
  - ECTOPIC PREGNANCY [None]
